FAERS Safety Report 19441606 (Version 1)
Quarter: 2021Q2

REPORT INFORMATION
  Report Type: Spontaneous
  Country: US (occurrence: US)
  Receive Date: 20210617
  Receipt Date: 20210617
  Transmission Date: 20210717
  Serious: No
  Sender: FDA-Public Use
  Company Number: None

PATIENT
  Age: 67 Year
  Sex: Female

DRUGS (1)
  1. ENTYVIO [Suspect]
     Active Substance: VEDOLIZUMAB
     Dosage: OTHER
     Route: 042
     Dates: start: 20181201

REACTIONS (2)
  - Wound [None]
  - Surgery [None]

NARRATIVE: CASE EVENT DATE: 20210617
